FAERS Safety Report 23485943 (Version 1)
Quarter: 2024Q1

REPORT INFORMATION
  Report Type: Spontaneous
  Country: DE (occurrence: DE)
  Receive Date: 20240206
  Receipt Date: 20240206
  Transmission Date: 20240410
  Serious: No
  Sender: FDA-Public Use
  Company Number: DE-ALKEM LABORATORIES LIMITED-DE-ALKEM-2023-01577

PATIENT
  Sex: Male
  Weight: 72 kg

DRUGS (7)
  1. EZETIMIBE [Suspect]
     Active Substance: EZETIMIBE
     Indication: Low density lipoprotein increased
     Dosage: 10 MILLIGRAM, QD (EVERY 1 DAY) (TABLET)
     Route: 065
     Dates: start: 202212
  2. EZETIMIBE [Suspect]
     Active Substance: EZETIMIBE
     Dosage: 20 MILLIGRAM (TABLET)
     Route: 065
     Dates: start: 202301
  3. BEMPEDOIC ACID [Suspect]
     Active Substance: BEMPEDOIC ACID
     Indication: Low density lipoprotein increased
     Dosage: 1 DOSAGE FORM, QD (EVERY 1 DAY), (TABLET)
     Route: 065
     Dates: start: 202301
  4. CLOPIDOGREL HYDROCHLORIDE [Concomitant]
     Active Substance: CLOPIDOGREL HYDROCHLORIDE
     Indication: Stent placement
     Dosage: 75 MILLIGRAM, QD (EVERY 1 DAY)
     Route: 065
     Dates: start: 202207
  5. RAMIPRIL [Concomitant]
     Active Substance: RAMIPRIL
     Indication: Hypertension
     Dosage: 10 MILLIGRAM, QD (EVERY 1 DAY)
     Route: 065
     Dates: start: 202207
  6. RAMIPRIL [Concomitant]
     Active Substance: RAMIPRIL
     Indication: Stent placement
  7. ROSUVASTATIN [Concomitant]
     Active Substance: ROSUVASTATIN
     Indication: Product used for unknown indication
     Dosage: 10 MILLIGRAM
     Route: 065
     Dates: start: 202206

REACTIONS (2)
  - Abdominal discomfort [Recovering/Resolving]
  - Myalgia [Recovering/Resolving]

NARRATIVE: CASE EVENT DATE: 20230101
